FAERS Safety Report 10403876 (Version 1)
Quarter: 2014Q1

REPORT INFORMATION
  Report Type: Spontaneous
  Country: US (occurrence: None)
  Receive Date: 20130815
  Receipt Date: 20130815
  Transmission Date: 20141002
  Serious: Yes (Other)
  Sender: FDA-Public Use
  Company Number: ADR-2012-02096

PATIENT
  Age: 59 Year
  Sex: Female

DRUGS (3)
  1. LIORESAL [Suspect]
  2. MORPHINE [Concomitant]
  3. BUPIVACAINE [Concomitant]

REACTIONS (5)
  - Agitation [None]
  - Drug withdrawal syndrome [None]
  - Pain [None]
  - Hyperhidrosis [None]
  - Mental status changes [None]
